FAERS Safety Report 9090095 (Version 3)
Quarter: 2013Q1

REPORT INFORMATION
  Report Type: Report from Study
  Country: DE (occurrence: DE)
  Receive Date: 20130201
  Receipt Date: 20130226
  Transmission Date: 20140127
  Serious: Yes (Hospitalization)
  Sender: FDA-Public Use
  Company Number: DE-BRISTOL-MYERS SQUIBB COMPANY-16681090

PATIENT
  Age: 61 Year
  Sex: Female
  Weight: 57 kg

DRUGS (4)
  1. ERBITUX SOLN FOR INF [Suspect]
     Indication: COLORECTAL CANCER METASTATIC
     Dosage: 450MG/M2:23FB12-23FB?250MG/M2:01MA-29MY?29MY-ONG.?250MG/M2,Q2W,12JUN-ONG
     Route: 042
     Dates: start: 20120223
  2. OXALIPLATIN [Concomitant]
     Indication: CHEMOTHERAPY
  3. CAPECITABINE [Concomitant]
     Indication: CHEMOTHERAPY
  4. ANTIHISTAMINE NOS [Concomitant]
     Indication: PREMEDICATION
     Dosage: 23FEB2012 TO 23FEB2012 AND 01MAR2012 TO 01MAR2012
     Dates: start: 20120223

REACTIONS (1)
  - Intestinal congestion [Recovered/Resolved]
